FAERS Safety Report 13536087 (Version 1)
Quarter: 2017Q2

REPORT INFORMATION
  Report Type: Spontaneous
  Country: US (occurrence: US)
  Receive Date: 20170511
  Receipt Date: 20170511
  Transmission Date: 20170830
  Serious: No
  Sender: FDA-Public Use
  Company Number: US-PFIZER INC-2017200164

PATIENT
  Age: 31 Year
  Sex: Female
  Weight: 58.96 kg

DRUGS (1)
  1. FLAGYL [Suspect]
     Active Substance: METRONIDAZOLE\METRONIDAZOLE HYDROCHLORIDE
     Indication: BACTERIAL VAGINOSIS
     Dosage: UNK
     Dates: start: 20170424

REACTIONS (12)
  - Gait disturbance [Recovering/Resolving]
  - Condition aggravated [Recovering/Resolving]
  - Vulvovaginal swelling [Recovering/Resolving]
  - Muscle contracture [Recovering/Resolving]
  - Movement disorder [Recovering/Resolving]
  - Decreased appetite [Recovering/Resolving]
  - Insomnia [Recovering/Resolving]
  - Disturbance in attention [Recovering/Resolving]
  - Vulvovaginal pain [Recovering/Resolving]
  - Swelling [Recovering/Resolving]
  - Vulvovaginal pruritus [Recovering/Resolving]
  - Vulvovaginal erythema [Recovering/Resolving]

NARRATIVE: CASE EVENT DATE: 201704
